FAERS Safety Report 12138641 (Version 1)
Quarter: 2016Q1

REPORT INFORMATION
  Report Type: Spontaneous
  Country: RU (occurrence: RU)
  Receive Date: 20160302
  Receipt Date: 20160302
  Transmission Date: 20160526
  Serious: Yes (Hospitalization)
  Sender: FDA-Public Use
  Company Number: RU-TEVA-637554ISR

PATIENT
  Age: 39 Year

DRUGS (3)
  1. ROZAMET [Suspect]
     Active Substance: METRONIDAZOLE
     Route: 003
  2. AEVIT [Suspect]
     Active Substance: .ALPHA.-TOCOPHEROL\RETINOL
     Route: 048
  3. ZINCTERAL [Suspect]
     Active Substance: ZINC SULFATE\ZINC SULFATE ANHYDROUS
     Route: 048

REACTIONS (1)
  - Dermatitis allergic [Recovered/Resolved]
